FAERS Safety Report 8152556-3 (Version None)
Quarter: 2012Q1

REPORT INFORMATION
  Report Type: 
  Country: None (occurrence: None)
  Receive Date: 20120221
  Receipt Date: 20120213
  Transmission Date: 20120608
  Serious: Yes (Other)
  Sender: FDA-Public Use
  Company Number: JP-JNJFOC-20120202894

PATIENT
  Age: 96 Year
  Sex: Female

DRUGS (5)
  1. FENTANYL-100 [Suspect]
     Route: 062
     Dates: start: 20120128, end: 20120203
  2. NOVAMIN [Concomitant]
     Route: 065
  3. BETAMETHASONE [Concomitant]
     Route: 065
  4. FENTANYL-100 [Suspect]
     Indication: CANCER PAIN
     Route: 062
     Dates: start: 20120203
  5. MORPHINE HYDROCHLORIDE [Concomitant]
     Indication: CANCER PAIN
     Route: 065

REACTIONS (2)
  - OVERDOSE [None]
  - DELIRIUM [None]
